FAERS Safety Report 9391023 (Version 1)
Quarter: 2013Q3

REPORT INFORMATION
  Report Type: Spontaneous
  Country: US (occurrence: None)
  Receive Date: 20130705
  Receipt Date: 20130705
  Transmission Date: 20140515
  Serious: Yes (Hospitalization)
  Sender: FDA-Public Use
  Company Number: None

PATIENT
  Age: 43 Year
  Sex: Female
  Weight: 61 kg

DRUGS (1)
  1. CYMBALTA [Suspect]
     Indication: DEPRESSION
     Dosage: 60
     Route: 048
     Dates: start: 20130604, end: 20130610

REACTIONS (9)
  - Fatigue [None]
  - Hyperhidrosis [None]
  - Chills [None]
  - Abdominal pain [None]
  - Confusional state [None]
  - Hepatitis [None]
  - Leptospirosis [None]
  - Lyme disease [None]
  - Q fever [None]
